FAERS Safety Report 8791582 (Version 1)
Quarter: 2012Q4

REPORT INFORMATION
  Report Type: Spontaneous
  Country: US (occurrence: None)
  Receive Date: 20120913
  Receipt Date: 20120913
  Transmission Date: 20130627
  Serious: Yes (Hospitalization)
  Sender: FDA-Public Use
  Company Number: 2012AT000537

PATIENT
  Age: 67 Year
  Sex: Male

DRUGS (1)
  1. TESTOPEL [Suspect]
     Indication: TESTOSTERONE DEFICIENCY
     Route: 058
     Dates: start: 20120822, end: 20120822

REACTIONS (8)
  - Sepsis [None]
  - Bacterial test positive [None]
  - Device related infection [None]
  - Incision site pain [None]
  - Incision site erythema [None]
  - Implant site cellulitis [None]
  - Renal failure acute [None]
  - Mental status changes [None]
